FAERS Safety Report 5678224-5 (Version None)
Quarter: 2008Q1

REPORT INFORMATION
  Report Type: 
  Country: None (occurrence: None)
  Receive Date: 20080319
  Receipt Date: 20080303
  Transmission Date: 20080703
  Serious: Yes (Hospitalization)
  Sender: FDA-Public Use
  Company Number: 2007EU001600

PATIENT
  Age: 8 Month
  Sex: Female

DRUGS (5)
  1. PROGRAF [Suspect]
     Indication: LIVER TRANSPLANT
     Dosage: 1.8 MG, BID, ORAL
     Route: 048
     Dates: start: 20070610, end: 20070704
  2. URBASON (METHYLPREDNISOLONE SODIUM SUCCINATE) [Concomitant]
  3. KEPINOL (SULFAMETHOXAZOLE, TRIMETHOPRIM) [Concomitant]
  4. LASIX [Concomitant]
  5. ASPIRIN [Concomitant]

REACTIONS (1)
  - HYPERTROPHIC CARDIOMYOPATHY [None]
